FAERS Safety Report 22203282 (Version 1)
Quarter: 2023Q2

REPORT INFORMATION
  Report Type: Spontaneous
  Country: IL (occurrence: None)
  Receive Date: 20230412
  Receipt Date: 20230412
  Transmission Date: 20230722
  Serious: Yes (Other)
  Sender: FDA-Public Use
  Company Number: 2023A078922

PATIENT
  Age: 68 Year
  Sex: Female

DRUGS (3)
  1. OSIMERTINIB [Suspect]
     Active Substance: OSIMERTINIB
     Indication: Squamous cell carcinoma of lung
     Route: 048
     Dates: start: 202009
  2. AMIVANTANAB [Concomitant]
  3. AMIVANTANAB [Concomitant]
     Dates: start: 202203

REACTIONS (2)
  - Malignant neoplasm progression [Recovered/Resolved]
  - Drug resistance [Recovered/Resolved]

NARRATIVE: CASE EVENT DATE: 20211001
